FAERS Safety Report 4429853-8 (Version None)
Quarter: 2004Q3

REPORT INFORMATION
  Report Type: 
  Country: None (occurrence: None)
  Receive Date: 20040820
  Receipt Date: 20040811
  Transmission Date: 20050211
  Serious: Yes (Hospitalization)
  Sender: FDA-Public Use
  Company Number: US-JNJFOC-20040803910

PATIENT
  Age: 88 Year
  Sex: Female

DRUGS (4)
  1. DURAGESIC [Suspect]
     Route: 062
     Dates: start: 20040701
  2. DURAGESIC [Suspect]
     Route: 062
     Dates: start: 20040701
  3. NAMENDA [Concomitant]
     Route: 049
  4. ARICEPT [Concomitant]
     Route: 049
     Dates: end: 20040801

REACTIONS (7)
  - ABDOMINAL PAIN UPPER [None]
  - ASTHENIA [None]
  - DIZZINESS [None]
  - DYSPNOEA [None]
  - FLATULENCE [None]
  - HEMIPARESIS [None]
  - LETHARGY [None]
